FAERS Safety Report 5341599-0 (Version None)
Quarter: 2007Q2

REPORT INFORMATION
  Report Type: 
  Country: None (occurrence: None)
  Receive Date: 20070529
  Receipt Date: 20070529
  Transmission Date: 20071010
  Serious: Yes (Other)
  Sender: FDA-Public Use
  Company Number: None

PATIENT
  Age: 53 Year
  Sex: Female
  Weight: 46.7205 kg

DRUGS (1)
  1. CIPROFLOXACIN [Suspect]
     Indication: DIVERTICULITIS
     Dosage: 500MG 2X DAY ORAL
     Route: 048
     Dates: start: 20070408, end: 20070414

REACTIONS (4)
  - ARTHRALGIA [None]
  - BURNING SENSATION [None]
  - PAIN IN EXTREMITY [None]
  - TENDON PAIN [None]
